FAERS Safety Report 4495833-X (Version None)
Quarter: 2004Q4

REPORT INFORMATION
  Report Type: 
  Country: None (occurrence: None)
  Receive Date: 20041108
  Receipt Date: 20040929
  Transmission Date: 20050328
  Serious: Yes (Life-Threatening)
  Sender: FDA-Public Use
  Company Number: JP-GLAXOSMITHKLINE-B0347027A

PATIENT
  Age: 13 Year
  Sex: Female

DRUGS (5)
  1. PAXIL [Suspect]
     Indication: DEPRESSION
     Dosage: 30MG PER DAY
     Route: 048
     Dates: start: 20030311, end: 20030404
  2. FLUVOXAMINE [Suspect]
     Indication: DEPRESSION
     Dosage: 75MG PER DAY
     Route: 065
  3. VALPROIC ACID [Concomitant]
     Route: 065
  4. ALOSENN [Concomitant]
     Indication: CONSTIPATION
     Dosage: .5G PER DAY
     Route: 048
     Dates: start: 20030403
  5. RACOL [Concomitant]
     Indication: ANOREXIA NERVOSA
     Route: 048
     Dates: start: 20030311

REACTIONS (6)
  - CEREBRAL CYST [None]
  - CONDITION AGGRAVATED [None]
  - CONVULSION [None]
  - CYST [None]
  - EPILEPSY [None]
  - GRAND MAL CONVULSION [None]
